FAERS Safety Report 8386448-1 (Version None)
Quarter: 2012Q2

REPORT INFORMATION
  Report Type: 
  Country: None (occurrence: None)
  Receive Date: 20120525
  Receipt Date: 20120518
  Transmission Date: 20120825
  Serious: Yes (Disabling)
  Sender: FDA-Public Use
  Company Number: US-PFIZER INC-2012114702

PATIENT
  Sex: Male
  Weight: 77 kg

DRUGS (7)
  1. PEGVISOMANT [Suspect]
     Dosage: 10 MG, ALTERNATE DAY
     Route: 058
     Dates: start: 20070101, end: 20120424
  2. CALCIUM [Concomitant]
     Indication: OSTEOPOROSIS
     Dosage: UNK
     Route: 048
     Dates: start: 20081001
  3. DYAZIDE [Concomitant]
     Indication: HYPERTENSION
     Dosage: UNK
     Route: 048
     Dates: start: 20061026
  4. VALSARTAN [Concomitant]
     Dosage: UNK
     Route: 048
     Dates: start: 20080320
  5. VALSARTAN [Concomitant]
     Indication: HYPERTENSION
     Dosage: UNK
     Dates: start: 20061026
  6. PRILOSEC [Concomitant]
     Dosage: UNK
     Route: 048
     Dates: start: 20080320
  7. PEGVISOMANT [Suspect]
     Indication: ACROMEGALY
     Dosage: 10 MG, ALTERNATE DAY INJECTION
     Route: 058
     Dates: start: 20040115, end: 20070101

REACTIONS (1)
  - ARTHRALGIA [None]
